FAERS Safety Report 22155167 (Version 3)
Quarter: 2023Q2

REPORT INFORMATION
  Report Type: Spontaneous
  Country: CA (occurrence: None)
  Receive Date: 20230330
  Receipt Date: 20230503
  Transmission Date: 20230722
  Serious: Yes (Other)
  Sender: FDA-Public Use
  Company Number: CA-PFIZER INC-202300130625

PATIENT
  Age: 60 Year
  Sex: Female
  Weight: 86.1 kg

DRUGS (4)
  1. METHOTREXATE [Suspect]
     Active Substance: METHOTREXATE
     Indication: Product used for unknown indication
     Route: 065
  2. METHOTREXATE [Suspect]
     Active Substance: METHOTREXATE
     Route: 065
  3. PREDNISONE [Concomitant]
     Active Substance: PREDNISONE
     Route: 065
  4. RUXIENCE [Concomitant]
     Active Substance: RITUXIMAB-PVVR
     Indication: Granulomatosis with polyangiitis
     Dosage: DAY 0 AND DAY 14;?ONGOING
     Route: 042
     Dates: start: 20230419

REACTIONS (3)
  - Sinusitis [Recovered/Resolved]
  - Inflammation [Unknown]
  - Nausea [Unknown]
